FAERS Safety Report 20148559 (Version 2)
Quarter: 2022Q3

REPORT INFORMATION
  Report Type: Report from Study
  Country: US (occurrence: US)
  Receive Date: 20211205
  Receipt Date: 20220913
  Transmission Date: 20221027
  Serious: Yes (Hospitalization, Other)
  Sender: FDA-Public Use
  Company Number: US-TAKEDA-US201934257

PATIENT
  Age: 51 Year
  Sex: Male
  Weight: 79 kg

DRUGS (40)
  1. TEDUGLUTIDE [Suspect]
     Active Substance: TEDUGLUTIDE
     Indication: Short-bowel syndrome
     Dosage: 4.3 MILLIGRAM
     Route: 042
     Dates: start: 201711, end: 20171130
  2. TEDUGLUTIDE [Suspect]
     Active Substance: TEDUGLUTIDE
     Indication: Short-bowel syndrome
     Dosage: 4.3 MILLIGRAM
     Route: 042
     Dates: start: 201711, end: 20171130
  3. TEDUGLUTIDE [Suspect]
     Active Substance: TEDUGLUTIDE
     Indication: Short-bowel syndrome
     Dosage: 4.3 MILLIGRAM
     Route: 042
     Dates: start: 201711, end: 20171130
  4. TEDUGLUTIDE [Suspect]
     Active Substance: TEDUGLUTIDE
     Indication: Short-bowel syndrome
     Dosage: 4.3 MILLIGRAM
     Route: 042
     Dates: start: 201711, end: 20171130
  5. TEDUGLUTIDE [Suspect]
     Active Substance: TEDUGLUTIDE
     Dosage: 4.3 MILLIGRAM
     Route: 042
     Dates: start: 20171117, end: 20171130
  6. TEDUGLUTIDE [Suspect]
     Active Substance: TEDUGLUTIDE
     Dosage: 4.3 MILLIGRAM
     Route: 042
     Dates: start: 20171117, end: 20171130
  7. TEDUGLUTIDE [Suspect]
     Active Substance: TEDUGLUTIDE
     Dosage: 4.3 MILLIGRAM
     Route: 042
     Dates: start: 20171117, end: 20171130
  8. TEDUGLUTIDE [Suspect]
     Active Substance: TEDUGLUTIDE
     Dosage: 4.3 MILLIGRAM
     Route: 042
     Dates: start: 20171117, end: 20171130
  9. TEDUGLUTIDE [Suspect]
     Active Substance: TEDUGLUTIDE
     Dosage: 3.8 MILLIGRAM, QD
     Route: 042
     Dates: start: 20180701, end: 20191003
  10. TEDUGLUTIDE [Suspect]
     Active Substance: TEDUGLUTIDE
     Dosage: 3.8 MILLIGRAM, QD
     Route: 042
     Dates: start: 20180701, end: 20191003
  11. TEDUGLUTIDE [Suspect]
     Active Substance: TEDUGLUTIDE
     Dosage: 3.8 MILLIGRAM, QD
     Route: 042
     Dates: start: 20180701, end: 20191003
  12. TEDUGLUTIDE [Suspect]
     Active Substance: TEDUGLUTIDE
     Dosage: 3.8 MILLIGRAM, QD
     Route: 042
     Dates: start: 20180701, end: 20191003
  13. TEDUGLUTIDE [Suspect]
     Active Substance: TEDUGLUTIDE
     Dosage: 3.8 MILLIGRAM
     Route: 042
     Dates: start: 20191010
  14. TEDUGLUTIDE [Suspect]
     Active Substance: TEDUGLUTIDE
     Dosage: 3.8 MILLIGRAM
     Route: 042
     Dates: start: 20191010
  15. TEDUGLUTIDE [Suspect]
     Active Substance: TEDUGLUTIDE
     Dosage: 3.8 MILLIGRAM
     Route: 042
     Dates: start: 20191010
  16. TEDUGLUTIDE [Suspect]
     Active Substance: TEDUGLUTIDE
     Dosage: 3.8 MILLIGRAM
     Route: 042
     Dates: start: 20191010
  17. TEDUGLUTIDE [Suspect]
     Active Substance: TEDUGLUTIDE
     Dosage: 3.8 MILLIGRAM, QD
     Route: 042
     Dates: start: 201807, end: 20191003
  18. TEDUGLUTIDE [Suspect]
     Active Substance: TEDUGLUTIDE
     Dosage: 3.8 MILLIGRAM, QD
     Route: 042
     Dates: start: 201807, end: 20191003
  19. TEDUGLUTIDE [Suspect]
     Active Substance: TEDUGLUTIDE
     Dosage: 3.8 MILLIGRAM, QD
     Route: 042
     Dates: start: 201807, end: 20191003
  20. TEDUGLUTIDE [Suspect]
     Active Substance: TEDUGLUTIDE
     Dosage: 3.8 MILLIGRAM, QD
     Route: 042
     Dates: start: 201807, end: 20191003
  21. TEDUGLUTIDE [Suspect]
     Active Substance: TEDUGLUTIDE
     Dosage: 3.8 MILLIGRAM, QD
     Route: 042
     Dates: start: 20191010, end: 202005
  22. TEDUGLUTIDE [Suspect]
     Active Substance: TEDUGLUTIDE
     Dosage: 3.8 MILLIGRAM, QD
     Route: 042
     Dates: start: 20191010, end: 202005
  23. TEDUGLUTIDE [Suspect]
     Active Substance: TEDUGLUTIDE
     Dosage: 3.8 MILLIGRAM, QD
     Route: 042
     Dates: start: 20191010, end: 202005
  24. TEDUGLUTIDE [Suspect]
     Active Substance: TEDUGLUTIDE
     Dosage: 3.8 MILLIGRAM, QD
     Route: 042
     Dates: start: 20191010, end: 202005
  25. TEDUGLUTIDE [Suspect]
     Active Substance: TEDUGLUTIDE
     Dosage: 3.3 MILLIGRAM, QD
     Route: 042
     Dates: start: 202005, end: 202007
  26. TEDUGLUTIDE [Suspect]
     Active Substance: TEDUGLUTIDE
     Dosage: 3.3 MILLIGRAM, QD
     Route: 042
     Dates: start: 202005, end: 202007
  27. TEDUGLUTIDE [Suspect]
     Active Substance: TEDUGLUTIDE
     Dosage: 3.3 MILLIGRAM, QD
     Route: 042
     Dates: start: 202005, end: 202007
  28. TEDUGLUTIDE [Suspect]
     Active Substance: TEDUGLUTIDE
     Dosage: 3.3 MILLIGRAM, QD
     Route: 042
     Dates: start: 202005, end: 202007
  29. TEDUGLUTIDE [Suspect]
     Active Substance: TEDUGLUTIDE
     Dosage: 3.4 MILLIGRAM, QD
     Route: 042
     Dates: start: 202007
  30. TEDUGLUTIDE [Suspect]
     Active Substance: TEDUGLUTIDE
     Dosage: 3.4 MILLIGRAM, QD
     Route: 042
     Dates: start: 202007
  31. TEDUGLUTIDE [Suspect]
     Active Substance: TEDUGLUTIDE
     Dosage: 3.4 MILLIGRAM, QD
     Route: 042
     Dates: start: 202007
  32. TEDUGLUTIDE [Suspect]
     Active Substance: TEDUGLUTIDE
     Dosage: 3.4 MILLIGRAM, QD
     Route: 042
     Dates: start: 202007
  33. LOPERAMIDE HYDROCHLORIDE [Concomitant]
     Active Substance: LOPERAMIDE HYDROCHLORIDE
     Indication: Diarrhoea
     Route: 065
  34. VANCOMYCIN [Concomitant]
     Active Substance: VANCOMYCIN
     Indication: Staphylococcal infection
     Route: 065
  35. BACTRIM [Concomitant]
     Active Substance: SULFAMETHOXAZOLE\TRIMETHOPRIM
     Indication: Bacteraemia
     Route: 065
  36. ATIVAN [Concomitant]
     Active Substance: LORAZEPAM
     Indication: Schizophrenia
     Route: 065
  37. VITAMINS [Concomitant]
     Active Substance: VITAMINS
     Indication: Neuropathy peripheral
     Dosage: 2 DOSAGE FORM, QD
     Route: 048
     Dates: start: 202011
  38. TRAZODONE [Concomitant]
     Active Substance: TRAZODONE HYDROCHLORIDE
     Indication: Insomnia
     Dosage: 250 MILLIGRAM, QD
     Route: 048
     Dates: start: 202011
  39. DIPHENOXYLATE HYDROCHLORIDE AND ATROPINE SULFATE [Concomitant]
     Active Substance: ATROPINE SULFATE\DIPHENOXYLATE HYDROCHLORIDE
     Indication: Diarrhoea
     Dosage: 5 MILLILITER, TID
     Route: 048
     Dates: start: 20201125
  40. MELATONIN [Concomitant]
     Active Substance: MELATONIN
     Indication: Insomnia
     Dosage: 3 MILLIGRAM, QD
     Route: 048
     Dates: start: 2020

REACTIONS (1)
  - Biliary dilatation [Not Recovered/Not Resolved]

NARRATIVE: CASE EVENT DATE: 20190613
